FAERS Safety Report 9425223 (Version 2)
Quarter: 2013Q3

REPORT INFORMATION
  Report Type: Spontaneous
  Country: FR (occurrence: None)
  Receive Date: 20130725
  Receipt Date: 20130725
  Transmission Date: 20140515
  Serious: Yes (Hospitalization)
  Sender: FDA-Public Use
  Company Number: ENTC2013-0257

PATIENT
  Age: 65 Year
  Sex: Female

DRUGS (4)
  1. STALEVO [Suspect]
     Route: 048
     Dates: start: 2010, end: 20130625
  2. SEROPLEX [Concomitant]
  3. LODOZ [Concomitant]
  4. KARDEGIC [Concomitant]

REACTIONS (13)
  - Psychotic disorder [None]
  - Asthenia [None]
  - Sleep disorder [None]
  - Hypercreatininaemia [None]
  - Creatinine renal clearance decreased [None]
  - Depressed mood [None]
  - Delirium [None]
  - Anxiety [None]
  - Abnormal behaviour [None]
  - Hallucination, visual [None]
  - Somatisation disorder [None]
  - Persecutory delusion [None]
  - Blood pressure systolic increased [None]
